FAERS Safety Report 4388574-0 (Version None)
Quarter: 2004Q2

REPORT INFORMATION
  Report Type: 
  Country: None (occurrence: None)
  Receive Date: 20040628
  Receipt Date: 20011213
  Transmission Date: 20050107
  Serious: Yes (Disabling)
  Sender: FDA-Public Use
  Company Number: 6849

PATIENT
  Age: 76 Year
  Sex: Female

DRUGS (6)
  1. AMIODARONE HCL [Suspect]
     Indication: ATRIAL FIBRILLATION
     Route: 048
     Dates: start: 19981201, end: 20010716
  2. NITROFURANTOIN [Suspect]
     Indication: URINARY TRACT INFECTION
     Route: 048
     Dates: start: 19971001, end: 20010716
  3. BENDROFLUAZIDE [Concomitant]
  4. NICORANDIL [Concomitant]
  5. ISOSORBIDE MONONITRATE [Concomitant]
  6. DILTIAZEM [Concomitant]

REACTIONS (1)
  - INTERSTITIAL LUNG DISEASE [None]
